FAERS Safety Report 6033398-1 (Version None)
Quarter: 2009Q1

REPORT INFORMATION
  Report Type: 
  Country: None (occurrence: None)
  Receive Date: 20090106
  Receipt Date: 20080227
  Transmission Date: 20090719
  Serious: Yes (Other)
  Sender: FDA-Public Use
  Company Number: DSA_31509_2008

PATIENT
  Sex: Male

DRUGS (14)
  1. DILTIAZEM HYDROCHLORIDE [Suspect]
     Indication: DRUG USE FOR UNKNOWN INDICATION
     Dosage: 60 MG TID ORAL, 60 MG BID ORAL
     Route: 048
     Dates: end: 20071126
  2. DILTIAZEM HYDROCHLORIDE [Suspect]
     Indication: DRUG USE FOR UNKNOWN INDICATION
     Dosage: 60 MG TID ORAL, 60 MG BID ORAL
     Route: 048
     Dates: start: 20071127
  3. RANEXA [Suspect]
     Indication: ANGINA PECTORIS
     Dosage: 500 MG QD, 1000 MG BID ORAL, 500 MG BID
     Route: 048
     Dates: start: 20071109, end: 20071126
  4. RANEXA [Suspect]
     Indication: ANGINA PECTORIS
     Dosage: 500 MG QD, 1000 MG BID ORAL, 500 MG BID
     Route: 048
     Dates: start: 20071127, end: 20080115
  5. RANEXA [Suspect]
     Indication: ANGINA PECTORIS
     Dosage: 500 MG QD, 1000 MG BID ORAL, 500 MG BID
     Route: 048
     Dates: start: 20080118
  6. NITROGLYCERIN [Concomitant]
  7. PLAVIX [Concomitant]
  8. METOPROLOL [Concomitant]
  9. CRESTOR [Concomitant]
  10. ZETIA [Concomitant]
  11. ATACAND [Concomitant]
  12. NIASPAN [Concomitant]
  13. ASA ARTHRITIS STENGTH ASPIRIN [Concomitant]
  14. METFORMIN HCL [Concomitant]

REACTIONS (3)
  - ARTHRALGIA [None]
  - HEAD TITUBATION [None]
  - TREMOR [None]
